FAERS Safety Report 4829442-7 (Version None)
Quarter: 2005Q4

REPORT INFORMATION
  Report Type: 
  Country: None (occurrence: None)
  Receive Date: 20051116
  Receipt Date: 20050930
  Transmission Date: 20060501
  Serious: Yes (Hospitalization)
  Sender: FDA-Public Use
  Company Number: US-MERCK-0510USA01898

PATIENT
  Age: 52 Year
  Sex: Male
  Weight: 73 kg

DRUGS (12)
  1. VIOXX [Suspect]
     Indication: PAIN
     Route: 048
     Dates: start: 20030124, end: 20030922
  2. DEPAKOTE [Concomitant]
     Indication: DEPRESSION
     Route: 065
  3. MIOFLEX (ACETAMINOPHEN (+) CARISOPRODOL (+) PHENYLBUTAZONE) [Concomitant]
     Route: 065
  4. ASPIRIN [Concomitant]
     Route: 065
  5. PLAVIX [Concomitant]
     Route: 065
  6. REMERON [Concomitant]
     Route: 065
  7. INDOCIN [Concomitant]
     Route: 065
  8. ZOCOR [Concomitant]
     Route: 048
  9. NORVASC [Concomitant]
     Route: 065
  10. NITROGLYCERIN [Concomitant]
     Route: 060
  11. HYDROCODONE BITARTRATE [Concomitant]
     Route: 065
  12. MAGNESIUM OXIDE [Concomitant]
     Route: 065

REACTIONS (5)
  - BACK INJURY [None]
  - CONVULSION [None]
  - DEPRESSION [None]
  - MYOCARDIAL INFARCTION [None]
  - PRESCRIBED OVERDOSE [None]
